FAERS Safety Report 19488089 (Version 1)
Quarter: 2021Q3

REPORT INFORMATION
  Report Type: Spontaneous
  Country: US (occurrence: US)
  Receive Date: 20210702
  Receipt Date: 20210702
  Transmission Date: 20211014
  Serious: No
  Sender: FDA-Public Use
  Company Number: US-BIODELIVERY SCIENCES INTERNATIONAL-2021BDSI0082

PATIENT
  Age: 52 Year
  Sex: Female
  Weight: 78.09 kg

DRUGS (4)
  1. BUPRENORPHINE. [Suspect]
     Active Substance: BUPRENORPHINE
  2. BUPRENORPHINE. [Suspect]
     Active Substance: BUPRENORPHINE
     Dosage: COULD TAKE Q8H OR ONE FILM IN THE MORNING AND TWO AT NIGHT
     Route: 002
     Dates: start: 20210115
  3. BUPRENORPHINE. [Suspect]
     Active Substance: BUPRENORPHINE
     Indication: PAIN
     Route: 002
     Dates: start: 202012, end: 202101
  4. GABAPENTIN. [Concomitant]
     Active Substance: GABAPENTIN
     Indication: NEURALGIA
     Route: 048
     Dates: start: 2020

REACTIONS (8)
  - Product prescribing error [Unknown]
  - Product solubility abnormal [Unknown]
  - Therapeutic response decreased [Unknown]
  - Breakthrough pain [Not Recovered/Not Resolved]
  - Gait inability [Not Recovered/Not Resolved]
  - Product packaging quantity issue [Unknown]
  - Insomnia [Not Recovered/Not Resolved]
  - Fine motor skill dysfunction [Not Recovered/Not Resolved]

NARRATIVE: CASE EVENT DATE: 202012
